FAERS Safety Report 14734204 (Version 1)
Quarter: 2018Q2

REPORT INFORMATION
  Report Type: Spontaneous
  Country: US (occurrence: US)
  Receive Date: 20180409
  Receipt Date: 20180409
  Transmission Date: 20180711
  Serious: Yes (Other)
  Sender: FDA-Public Use
  Company Number: US-AMGEN-USASP2018045969

PATIENT
  Age: 57 Year
  Sex: Female

DRUGS (1)
  1. REPATHA [Suspect]
     Active Substance: EVOLOCUMAB
     Indication: HYPERLIPIDAEMIA
     Dosage: 240 MG, Q2WK
     Route: 065

REACTIONS (3)
  - Injection site erythema [Unknown]
  - Cellulitis [Unknown]
  - Off label use [Unknown]

NARRATIVE: CASE EVENT DATE: 20171129
